FAERS Safety Report 4341026-6 (Version None)
Quarter: 2004Q2

REPORT INFORMATION
  Report Type: 
  Country: None (occurrence: None)
  Receive Date: 20040413
  Receipt Date: 20040331
  Transmission Date: 20050107
  Serious: Yes (Other)
  Sender: FDA-Public Use
  Company Number: ES-JNJFOC-20040401376

PATIENT
  Age: 75 Year
  Sex: Male

DRUGS (1)
  1. REOPRO [Suspect]
     Indication: CORONARY ARTERY SURGERY
     Dosage: 0.25 MG/KG, 1 IN 1 TOTAL, INTRAVENOUS; 10 UG, 1 IN 1 1 MINUTE, INTRAVENOUS
     Route: 042
     Dates: start: 20040301, end: 20040301

REACTIONS (1)
  - CARDIAC TAMPONADE [None]
